FAERS Safety Report 22311642 (Version 5)
Quarter: 2023Q4

REPORT INFORMATION
  Report Type: Report from Study
  Country: US (occurrence: US)
  Receive Date: 20230511
  Receipt Date: 20231027
  Transmission Date: 20240110
  Serious: Yes (Hospitalization)
  Sender: FDA-Public Use
  Company Number: US-ACADIA PHARMACEUTICALS INC.-ACA-2023-PIM-001535

PATIENT
  Sex: Female

DRUGS (36)
  1. NUPLAZID [Suspect]
     Active Substance: PIMAVANSERIN TARTRATE
     Indication: Parkinson^s disease psychosis
     Dosage: 34 MILLIGRAM, QD
     Route: 048
     Dates: start: 202006
  2. NUPLAZID [Suspect]
     Active Substance: PIMAVANSERIN TARTRATE
     Dosage: 34 MILLIGRAM, QD
     Route: 048
     Dates: start: 20201113
  3. NUPLAZID [Suspect]
     Active Substance: PIMAVANSERIN TARTRATE
     Dosage: UNK
     Route: 065
  4. CEFTRIAXONE [Suspect]
     Active Substance: CEFTRIAXONE\CEFTRIAXONE SODIUM
  5. ACETAMINOPHEN [Concomitant]
     Active Substance: ACETAMINOPHEN
     Indication: Pain
     Dosage: 500 MILLIGRAM, 2 TAB, TID, PRN
     Route: 048
     Dates: start: 20191113
  6. AMLODIPINE [Concomitant]
     Active Substance: AMLODIPINE BESYLATE
     Dosage: 10 MILLIGRAM, TAKE 1 TABLET BY MOUTH 1 TIME A DAY
     Route: 048
     Dates: start: 20230607
  7. ASPIRIN [Concomitant]
     Active Substance: ASPIRIN
     Dosage: 81 MILLIGRAM, QD
     Route: 048
     Dates: start: 20230227
  8. CALCIUM\VITAMIN D [Concomitant]
     Active Substance: CALCIUM\VITAMIN D
     Dosage: 600 MILLIGRAM-10 MCG, 1 TAB, DAILY
     Route: 048
     Dates: start: 20230227
  9. CARBIDOPA\LEVODOPA [Concomitant]
     Active Substance: CARBIDOPA\LEVODOPA
     Dosage: 25-100 MG, QID, AS DIRECTED 8:00AM, NOON, 4PM, AND 8PM. WITH 1/2 TAB, PRN UP TO TWICE DAILY AS NEEDE
     Route: 048
     Dates: start: 20191113
  10. CARBIDOPA\LEVODOPA [Concomitant]
     Active Substance: CARBIDOPA\LEVODOPA
     Dosage: 25-100 MG, 1 TAB, ORAL AT BEDTIME
     Route: 048
     Dates: start: 20230720
  11. CHOLECALCIFEROL [Concomitant]
     Active Substance: CHOLECALCIFEROL
     Dosage: 50 MCG, 1 TAB(S), ORAL, MO,WE,FR
     Route: 048
     Dates: start: 20230227
  12. CITALOPRAM [Concomitant]
     Active Substance: CITALOPRAM HYDROBROMIDE
     Indication: Anxiety
     Dosage: 20 MILLIGRAM, QD
     Route: 048
     Dates: start: 20230227
  13. CLOPIDOGREL [Concomitant]
     Active Substance: CLOPIDOGREL BISULFATE
     Dosage: 75 MILLIGRAM, TAKE 1 TABLET BY MOUTH 1 TIME A DAY
     Route: 048
     Dates: start: 20230607
  14. DOCUSATE [DOCUSATE SODIUM] [Concomitant]
     Dosage: 100 MILLIGRAM,2CAPSULES DAILY AT BEDTIME
     Route: 048
     Dates: start: 20230227
  15. OMEGA-3 FATTY ACIDS [Concomitant]
     Active Substance: OMEGA-3 FATTY ACIDS
     Dosage: 1000 MILLIGRAM, 1 CAPSULE, DAILY
     Route: 048
     Dates: start: 20230227
  16. FUROSEMIDE [Concomitant]
     Active Substance: FUROSEMIDE
     Dosage: 10 MILLIGRAM,(20MG TABLET 0.5 TABLET)
     Route: 048
     Dates: start: 20191113
  17. LEVOTHYROXINE [Concomitant]
     Active Substance: LEVOTHYROXINE
     Dosage: 100 MCG, TAKE 1 TABLET ONE TIME A DAY IN EVENING BEFIRE BED
     Route: 048
     Dates: start: 20230607
  18. LIDOCAINE [Concomitant]
     Active Substance: LIDOCAINE
     Dosage: 4%, 1 PATCH
     Route: 061
     Dates: start: 20201113
  19. CRANBERRY [Concomitant]
     Active Substance: CRANBERRY
     Dosage: 1 CAPSULE, DAILY
     Route: 048
     Dates: start: 20230227
  20. LOSARTAN [Concomitant]
     Active Substance: LOSARTAN
     Dosage: 25 MILLIGRAM, 1 TABLET, DAILY IN THE AM
     Route: 048
     Dates: start: 20230607
  21. LOSARTAN [Concomitant]
     Active Substance: LOSARTAN
     Dosage: 50 MILLIGRAM, 1 TABLET BY MOUTH ONE TIME A DAY,
     Route: 048
     Dates: start: 20230607
  22. MAGNESIUM OXIDE [Concomitant]
     Active Substance: MAGNESIUM OXIDE
     Dosage: 400 MILLIGRAM, 1 TABLET, DAILY, LUNCH
     Route: 048
     Dates: start: 20201113
  23. MELATONIN [Concomitant]
     Active Substance: MELATONIN
     Dosage: 3 MILLIGRAM, DAILY AT BEDTIME
     Route: 048
     Dates: start: 20230227
  24. MEMANTINE [Concomitant]
     Active Substance: MEMANTINE
     Dosage: 10 MILLIGRAM, 1 TABLET, ORAL, BID
     Route: 048
     Dates: start: 20230320
  25. METOPROLOL TARTRATE [Concomitant]
     Active Substance: METOPROLOL TARTRATE
     Dosage: 25 MILLIGRAM, BID
     Route: 048
     Dates: start: 20230607
  26. NITROFURANTOIN MONOHYDRATE MACROCRYSTALS [Concomitant]
     Active Substance: NITROFURANTOIN\NITROFURANTOIN MONOHYDRATE
     Dosage: 100 MILLIGRAM, TAKE 1 CAPSULE BY MOUTH 2 TIMES A DAY FOR 7 DAYS
     Route: 048
     Dates: start: 20230602
  27. PHENAZOPYRIDINE [Concomitant]
     Active Substance: PHENAZOPYRIDINE
     Indication: Urinary tract discomfort
     Dosage: 95 MILLIGRAM, 1 TABLET, PRN
     Route: 048
     Dates: start: 20230227
  28. MINERALS\VITAMINS [Concomitant]
     Active Substance: MINERALS\VITAMINS
     Dosage: 1 CAPSULE, ORAL, BID AM AND BEDTIME
     Route: 048
     Dates: start: 20191113
  29. SYSTANE (HYPROMELLOSE 2910 (4000 MPA.S)) [Concomitant]
     Active Substance: HYPROMELLOSE 2910 (4000 MPA.S)
     Dosage: 1 DROP, AS DIRECTED (GEL FORMING SOLUTION)
     Route: 047
     Dates: start: 20230227
  30. TAMSULOSIN [Concomitant]
     Active Substance: TAMSULOSIN
     Dosage: 0.4 MG, 1 CAPSULE ONCE DAILY
     Route: 048
     Dates: start: 20191113
  31. ACETAMINOPHEN [Concomitant]
     Active Substance: ACETAMINOPHEN
     Indication: Pain
     Dosage: 1300 MG, 2 TABLET, BID, PRN
     Route: 048
     Dates: start: 20201113
  32. ACETAMINOPHEN [Concomitant]
     Active Substance: ACETAMINOPHEN
     Dosage: 650 MILLIGRAM, BID
     Route: 048
  33. VABYSMO [Concomitant]
     Active Substance: FARICIMAB\FARICIMAB-SVOA
     Indication: Age-related macular degeneration
     Dosage: 6 MG/0.05 ML
     Route: 047
     Dates: start: 20230227
  34. VABYSMO [Concomitant]
     Active Substance: FARICIMAB\FARICIMAB-SVOA
     Indication: Choroidal neovascularisation
  35. VITAMIN B COMPLEX [Concomitant]
     Active Substance: CYANOCOBALAMIN\DEXPANTHENOL\NIACINAMIDE\PYRIDOXINE HYDROCHLORIDE\RIBOFLAVIN 5^-PHOSPHATE SODIUM\THIA
     Dosage: 1 TAB(S), ORAL, TU,FR
     Route: 048
     Dates: start: 20191113
  36. DICLOFENAC [Concomitant]
     Active Substance: DICLOFENAC
     Indication: Pain
     Dosage: 1%, QID, PRN
     Dates: start: 20191113

REACTIONS (4)
  - Anxiety [Not Recovered/Not Resolved]
  - Memory impairment [Not Recovered/Not Resolved]
  - Drug hypersensitivity [Unknown]
  - Therapeutic product effect decreased [Not Recovered/Not Resolved]
